FAERS Safety Report 6357331-8 (Version None)
Quarter: 2009Q3

REPORT INFORMATION
  Report Type: 
  Country: None (occurrence: None)
  Receive Date: 20090916
  Receipt Date: 20090909
  Transmission Date: 20100115
  Serious: Yes (Hospitalization)
  Sender: FDA-Public Use
  Company Number: US-BIOGENIDEC-2009BI029159

PATIENT
  Age: 31 Year
  Sex: Female

DRUGS (3)
  1. AVONEX [Suspect]
     Indication: MULTIPLE SCLEROSIS
     Route: 030
     Dates: start: 20071001
  2. AVONEX [Suspect]
     Route: 030
     Dates: start: 20051201
  3. AVONEX [Suspect]
     Route: 030
     Dates: start: 20060601

REACTIONS (2)
  - VERTIGO [None]
  - VOMITING [None]
